FAERS Safety Report 6792080-3 (Version None)
Quarter: 2010Q2

REPORT INFORMATION
  Report Type: 
  Country: None (occurrence: None)
  Receive Date: 20100624
  Receipt Date: 20081126
  Transmission Date: 20101027
  Serious: Yes (Hospitalization, Disabling)
  Sender: FDA-Public Use
  Company Number: US-PFIZER INC-2008060211

PATIENT
  Sex: Male

DRUGS (2)
  1. SUTENT [Suspect]
     Indication: SYNOVIAL SARCOMA
     Route: 048
     Dates: start: 20080314, end: 20080401
  2. VICODIN [Concomitant]
     Dosage: 5 / 500

REACTIONS (1)
  - INTESTINAL PERFORATION [None]
